FAERS Safety Report 7474479-5 (Version None)
Quarter: 2011Q2

REPORT INFORMATION
  Report Type: 
  Country: None (occurrence: None)
  Receive Date: 20110512
  Receipt Date: 20110112
  Transmission Date: 20111010
  Serious: No
  Sender: FDA-Public Use
  Company Number: US-BAYER-2011-005819

PATIENT
  Age: 67 Year
  Sex: Female

DRUGS (9)
  1. ANALGESICS [Concomitant]
  2. CHIROPRACTER [Concomitant]
  3. WATER PILL [Concomitant]
     Indication: BLOOD PRESSURE ABNORMAL
  4. PRAVASTATIN [Concomitant]
     Indication: BLOOD CHOLESTEROL ABNORMAL
  5. AVELOX [Suspect]
     Indication: RESPIRATORY TRACT INFECTION
     Dosage: 400 MG, UNK
     Route: 048
     Dates: start: 20101115, end: 20101119
  6. IBUPROFEN [Concomitant]
     Dosage: 800 MG, UNK
  7. HYDROCODONE BITARTRATE AND ACETAMINOPHEN [Concomitant]
     Dosage: 5MG/500MG
  8. AVELOX [Suspect]
     Indication: SINUSITIS
  9. CYCLOBENZAPRINE [Concomitant]
     Dosage: 10 MG, UNK

REACTIONS (1)
  - ARTHRALGIA [None]
